FAERS Safety Report 4601739-5 (Version None)
Quarter: 2005Q1

REPORT INFORMATION
  Report Type: 
  Country: None (occurrence: None)
  Receive Date: 20050131
  Receipt Date: 20041222
  Transmission Date: 20050727
  Serious: Yes (Other)
  Sender: FDA-Public Use
  Company Number: 200419784US

PATIENT
  Age: 23 Year
  Sex: Female

DRUGS (1)
  1. KETEK [Suspect]
     Indication: BRONCHITIS
     Dosage: 800 (X 5 DAYS) MG QD PO
     Route: 048
     Dates: start: 20041117, end: 20041121

REACTIONS (2)
  - HYPERSENSITIVITY [None]
  - OROPHARYNGEAL SWELLING [None]
